FAERS Safety Report 5633732-8 (Version None)
Quarter: 2008Q1

REPORT INFORMATION
  Report Type: 
  Country: None (occurrence: None)
  Receive Date: 20080131
  Receipt Date: 20071019
  Transmission Date: 20080703
  Serious: No
  Sender: FDA-Public Use
  Company Number: 163-21880-07100723

PATIENT
  Age: 72 Year
  Sex: Female

DRUGS (6)
  1. REVLIMID [Suspect]
     Indication: MULTIPLE MYELOMA
     Dosage: 15 MG, QD, ORAL ; 25 MG, QD, ORAL
     Route: 048
     Dates: start: 20070601, end: 20071001
  2. REVLIMID [Suspect]
     Indication: MULTIPLE MYELOMA
     Dosage: 15 MG, QD, ORAL ; 25 MG, QD, ORAL
     Route: 048
     Dates: start: 20071012
  3. TOPROL-XL [Concomitant]
  4. CALCIUM (CALCIUM) [Concomitant]
  5. LISINOPRIL [Concomitant]
  6. DECADRON [Concomitant]

REACTIONS (3)
  - DIARRHOEA [None]
  - HYPOAESTHESIA [None]
  - PAIN IN EXTREMITY [None]
